FAERS Safety Report 6381474-6 (Version None)
Quarter: 2009Q3

REPORT INFORMATION
  Report Type: 
  Country: None (occurrence: None)
  Receive Date: 20090924
  Receipt Date: 20090917
  Transmission Date: 20100115
  Serious: Yes (Hospitalization)
  Sender: FDA-Public Use
  Company Number: 2009090020

PATIENT
  Age: 58 Year
  Sex: Female

DRUGS (22)
  1. ASTELIN [Suspect]
     Indication: NASAL CONGESTION
     Dosage: HS (1 IN 1 D), IN
     Route: 055
     Dates: start: 20080401
  2. ASTELIN [Suspect]
     Indication: RHINITIS ALLERGIC
     Dosage: HS (1 IN 1 D), IN
     Route: 055
     Dates: start: 20080401
  3. OMNARIS [Suspect]
     Indication: MULTIPLE ALLERGIES
     Dosage: 200 MCG (200 MCG,1 IN 1 D),NASAL ; HS AT 8PM (100 MCG,1 IN 1 D),NASAL
     Route: 045
     Dates: start: 20080401, end: 20080501
  4. OMNARIS [Suspect]
     Indication: NASAL CONGESTION
     Dosage: 200 MCG (200 MCG,1 IN 1 D),NASAL ; HS AT 8PM (100 MCG,1 IN 1 D),NASAL
     Route: 045
     Dates: start: 20080401, end: 20080501
  5. OMNARIS [Suspect]
     Indication: MULTIPLE ALLERGIES
     Dosage: 200 MCG (200 MCG,1 IN 1 D),NASAL ; HS AT 8PM (100 MCG,1 IN 1 D),NASAL
     Route: 045
     Dates: start: 20090811
  6. OMNARIS [Suspect]
     Indication: NASAL CONGESTION
     Dosage: 200 MCG (200 MCG,1 IN 1 D),NASAL ; HS AT 8PM (100 MCG,1 IN 1 D),NASAL
     Route: 045
     Dates: start: 20090811
  7. VITAMIN B6 [Concomitant]
  8. NASONEX [Concomitant]
  9. ADVAIR DISKUS 100/50 [Concomitant]
  10. PRO-AIR (ALBUTEROL SULFATE) [Concomitant]
  11. TRAZODONE HCL [Concomitant]
  12. LEVOXYL [Concomitant]
  13. MELATONIN (MELATONIN) [Concomitant]
  14. MOTRIN [Concomitant]
  15. ZYRTEC [Concomitant]
  16. FLONASE [Concomitant]
  17. LOVAZA [Concomitant]
  18. VITAMIN B COMPLEX CAP [Concomitant]
  19. CALCIUM (CALCIUM) [Concomitant]
  20. VITAMIN D [Concomitant]
  21. GARLIC (GARLIC) [Concomitant]
  22. FLUCONAZOLE [Concomitant]

REACTIONS (6)
  - BRONCHIAL HYPERREACTIVITY [None]
  - DEHYDRATION [None]
  - DYSPHONIA [None]
  - ESCHERICHIA URINARY TRACT INFECTION [None]
  - HYPONATRAEMIA [None]
  - SINUSITIS [None]
